FAERS Safety Report 16721616 (Version 1)
Quarter: 2019Q3

REPORT INFORMATION
  Report Type: Spontaneous
  Country: FR (occurrence: FR)
  Receive Date: 20190820
  Receipt Date: 20190820
  Transmission Date: 20191005
  Serious: Yes (Death, Other)
  Sender: FDA-Public Use
  Company Number: FR-MYLANLABS-2019M1076507

PATIENT
  Age: 79 Year
  Sex: Male

DRUGS (13)
  1. ALPRAZOLAM MYLAN 0,25 MG [Suspect]
     Active Substance: ALPRAZOLAM
     Indication: ANXIETY
     Dosage: 1 DOSAGE FORM, QD
     Route: 048
  2. RIVASTIGMINE MYLAN PHARMA 9,5 MG/24 HEURES, DISPOSITIF TRANSDERMIQUE [Suspect]
     Active Substance: RIVASTIGMINE
     Indication: DEMENTIA
     Dosage: 1 DOSAGE FORM, QD
     Route: 062
  3. SINEMET [Suspect]
     Active Substance: CARBIDOPA\LEVODOPA
     Indication: PARKINSON^S DISEASE
     Dosage: 2 DOSAGE FORM, QD,1CP MATIN ET 1CP MIDI
     Route: 048
  4. ESCITALOPRAM [Suspect]
     Active Substance: ESCITALOPRAM OXALATE
     Indication: DEPRESSION
     Dosage: 1 DOSAGE FORM, QD,1 CP MATIN
     Route: 048
  5. PARACETAMOL,TRAMADOL MYLAN [Suspect]
     Active Substance: ACETAMINOPHEN\TRAMADOL HYDROCHLORIDE
     Indication: PAIN
     Dosage: UNK
     Route: 048
  6. LEVODOPA/CARBIDOPA TEVA [Suspect]
     Active Substance: CARBIDOPA\LEVODOPA
     Indication: PARKINSON^S DISEASE
     Dosage: 1 DOSAGE FORM, QD,1 CP AU COUCHER
     Route: 048
     Dates: start: 20190125
  7. MODOPAR [Suspect]
     Active Substance: BENSERAZIDE HYDROCHLORIDE\LEVODOPA
     Indication: PARKINSON^S DISEASE
     Dosage: 4 DOSAGE FORM, QD, 2CP ? 16H ET 2CP LE SOIR
     Route: 048
     Dates: start: 20190125, end: 20190205
  8. CLOZAPINE MERCK [Suspect]
     Active Substance: CLOZAPINE
     Indication: AGITATION
     Dosage: 1 DOSAGE FORM, QD,1 CP LE SOIR
     Route: 048
  9. ACUPAN [Suspect]
     Active Substance: NEFOPAM HYDROCHLORIDE
     Indication: PAIN
     Dosage: 4 DOSAGE FORM, QD
     Dates: start: 20190204
  10. DOLIPRANE [Suspect]
     Active Substance: ACETAMINOPHEN
     Indication: PAIN
     Dosage: UNK
     Route: 048
  11. DUTASTERIDE SANDOZ [Suspect]
     Active Substance: DUTASTERIDE
     Indication: BENIGN PROSTATIC HYPERPLASIA
     Dosage: 1 DOSAGE FORM, QD
     Route: 048
  12. OXYNORMORO [Suspect]
     Active Substance: OXYCODONE HYDROCHLORIDE
     Indication: PAIN
     Dosage: 4 DOSAGE FORM, QD,SI DOULEUR
     Route: 048
     Dates: start: 20190204
  13. MONOCRIXO [Suspect]
     Active Substance: TRAMADOL HYDROCHLORIDE
     Indication: PAIN
     Dosage: UNK
     Route: 048

REACTIONS (3)
  - Bedridden [Fatal]
  - Malaise [Fatal]
  - Pain [Recovered/Resolved]

NARRATIVE: CASE EVENT DATE: 20190202
